FAERS Safety Report 10971064 (Version 1)
Quarter: 2015Q1

REPORT INFORMATION
  Report Type: Report from Study
  Country: DE (occurrence: DE)
  Receive Date: 20150331
  Receipt Date: 20150331
  Transmission Date: 20150721
  Serious: Yes (Hospitalization)
  Sender: FDA-Public Use
  Company Number: PHHO2015DE004167

PATIENT
  Age: 64 Year
  Sex: Male
  Weight: 132.2 kg

DRUGS (2)
  1. BLINDED OLMESARTAN [Suspect]
     Active Substance: OLMESARTAN
     Dosage: CODE NOT BROKEN
     Route: 048
     Dates: start: 20150323
  2. BLINDED OLMESARTAN [Suspect]
     Active Substance: OLMESARTAN
     Indication: ESSENTIAL HYPERTENSION
     Dosage: CODE NOT BROKEN
     Route: 048
     Dates: start: 20140516, end: 20150317

REACTIONS (3)
  - Gastroenteritis [Recovered/Resolved]
  - Acute kidney injury [Recovered/Resolved]
  - Haematuria [Recovered/Resolved]

NARRATIVE: CASE EVENT DATE: 20150315
